FAERS Safety Report 16118953 (Version 2)
Quarter: 2021Q2

REPORT INFORMATION
  Report Type: Spontaneous
  Country: US (occurrence: US)
  Receive Date: 20190326
  Receipt Date: 20210624
  Transmission Date: 20210716
  Serious: No
  Sender: FDA-Public Use
  Company Number: US-BAYER-2019-060094

PATIENT
  Sex: Male

DRUGS (1)
  1. MIRENA [Suspect]
     Active Substance: LEVONORGESTREL
     Dosage: UNK
     Route: 064

REACTIONS (3)
  - Foetal exposure during pregnancy [None]
  - Low birth weight baby [None]
  - Milk allergy [None]

NARRATIVE: CASE EVENT DATE: 201802
